FAERS Safety Report 9198992 (Version 1)
Quarter: 2013Q1

REPORT INFORMATION
  Report Type: Spontaneous
  Country: US (occurrence: None)
  Receive Date: 20130325
  Receipt Date: 20130325
  Transmission Date: 20140127
  Serious: No
  Sender: FDA-Public Use
  Company Number: 2013US-004587

PATIENT
  Age: 28 Year
  Sex: Male
  Weight: 140 kg

DRUGS (9)
  1. OMONTYS (PEGINESATIDE) SOLUTION FOR INJECTION [Suspect]
     Indication: NEPHROGENIC ANAEMIA
     Route: 042
     Dates: start: 20130205, end: 20130205
  2. GLYBURIDE (GLIBENCLAMIDE) [Concomitant]
  3. HYDRALAZINE [Concomitant]
  4. LISINOPRIL [Concomitant]
  5. CARVEDILOL [Concomitant]
  6. SIMVASTATIN [Concomitant]
  7. MINOXIDIL [Concomitant]
  8. RENVELA (SEVELAMER CARBONATE) [Concomitant]
  9. ZEMPLAR (PARICALCITOL) [Concomitant]

REACTIONS (7)
  - Oropharyngeal pain [None]
  - Pharyngeal oedema [None]
  - Dysarthria [None]
  - Drooling [None]
  - Dysphagia [None]
  - Palatal oedema [None]
  - Hypersensitivity [None]
